FAERS Safety Report 5916510-1 (Version None)
Quarter: 2008Q4

REPORT INFORMATION
  Report Type: 
  Country: None (occurrence: None)
  Receive Date: 20081013
  Receipt Date: 20081003
  Transmission Date: 20090506
  Serious: Yes (Other)
  Sender: FDA-Public Use
  Company Number: A0751443A

PATIENT
  Age: 57 Year
  Sex: Male
  Weight: 131.8 kg

DRUGS (1)
  1. AVANDIA [Suspect]
     Indication: DIABETES MELLITUS
     Dosage: 8MG PER DAY
     Route: 048
     Dates: start: 20010101, end: 20070101

REACTIONS (6)
  - CARDIAC DISORDER [None]
  - CARDIAC VALVE DISEASE [None]
  - HYPERTENSION [None]
  - OEDEMA [None]
  - PAIN [None]
  - PERIPHERAL VASCULAR DISORDER [None]
